FAERS Safety Report 5653842-9 (Version None)
Quarter: 2008Q1

REPORT INFORMATION
  Report Type: 
  Country: None (occurrence: None)
  Receive Date: 20080306
  Receipt Date: 20080226
  Transmission Date: 20080703
  Serious: Yes (Life-Threatening, Hospitalization, Congenital Anomaly, Other)
  Sender: FDA-Public Use
  Company Number: US-PFIZER INC-2007106672

PATIENT
  Sex: Male
  Weight: 66.2 kg

DRUGS (6)
  1. CHANTIX [Suspect]
     Indication: SMOKING CESSATION THERAPY
     Dates: start: 20070821, end: 20071119
  2. TOPAMAX [Concomitant]
  3. GABITRIL [Concomitant]
  4. SOFTENERS, EMOLLIENTS [Concomitant]
  5. OMEPRAZOLE [Concomitant]
     Dosage: DAILY DOSE:20MG
  6. PROPOXYPHENE NAPSYLATE W/ ACETAMINOPHEN [Concomitant]

REACTIONS (8)
  - AGGRESSION [None]
  - ANGER [None]
  - CONVULSION [None]
  - LOSS OF CONSCIOUSNESS [None]
  - MECHANICAL VENTILATION [None]
  - OVERDOSE [None]
  - SUICIDE ATTEMPT [None]
  - WEIGHT INCREASED [None]
